FAERS Safety Report 7388345-7 (Version None)
Quarter: 2011Q1

REPORT INFORMATION
  Report Type: 
  Country: None (occurrence: None)
  Receive Date: 20110324
  Receipt Date: 20110309
  Transmission Date: 20110831
  Serious: Yes (Other)
  Sender: FDA-Public Use
  Company Number: 2011NO0084

PATIENT
  Age: 51 Year
  Sex: Male

DRUGS (3)
  1. PREDNISOLONE [Concomitant]
  2. KINERET [Suspect]
     Indication: SCHNITZLER'S SYNDROME
     Dosage: 100 MG (100 MG,1 IN 1 D) SUBCUTANEOUS
     Route: 058
  3. METHOTREXATE [Concomitant]

REACTIONS (1)
  - WALDENSTROM'S MACROGLOBULINAEMIA [None]
